FAERS Safety Report 13009325 (Version 1)
Quarter: 2016Q4

REPORT INFORMATION
  Report Type: Spontaneous
  Country: US (occurrence: US)
  Receive Date: 20161208
  Receipt Date: 20161208
  Transmission Date: 20170207
  Serious: No
  Sender: FDA-Public Use
  Company Number: US-PERRIGO-15US012540

PATIENT
  Age: 60 Year
  Sex: Female
  Weight: 95.24 kg

DRUGS (1)
  1. MINOXIDIL. [Suspect]
     Active Substance: MINOXIDIL
     Indication: ALOPECIA
     Dosage: 1 ML, BID
     Route: 061
     Dates: start: 201510, end: 20151127

REACTIONS (5)
  - Application site pruritus [Recovered/Resolved]
  - Alopecia [Recovered/Resolved]
  - Application site pain [Recovered/Resolved]
  - Trichotillomania [Unknown]
  - Application site irritation [Recovered/Resolved]

NARRATIVE: CASE EVENT DATE: 20151123
